FAERS Safety Report 16209466 (Version 1)
Quarter: 2019Q2

REPORT INFORMATION
  Report Type: Spontaneous
  Country: US (occurrence: US)
  Receive Date: 20190417
  Receipt Date: 20190417
  Transmission Date: 20190711
  Serious: Yes (Other)
  Sender: FDA-Public Use
  Company Number: US-PFIZER INC-2019081224

PATIENT
  Age: 60 Year
  Sex: Female

DRUGS (1)
  1. EUCRISA [Suspect]
     Active Substance: CRISABOROLE
     Indication: RASH
     Dosage: APPLY SMALL AMOUNT TO AFFECTED AREA TWICE A DAY AS NEEDED FOR 30 DAYS
     Route: 061
     Dates: start: 20190204, end: 20190314

REACTIONS (7)
  - Oropharyngeal pain [Recovering/Resolving]
  - Dysphagia [Recovering/Resolving]
  - Pruritus [Recovering/Resolving]
  - Palpitations [Recovering/Resolving]
  - Burning sensation [Recovering/Resolving]
  - Throat tightness [Unknown]
  - Product use in unapproved indication [Unknown]
